FAERS Safety Report 6249735-9 (Version None)
Quarter: 2009Q2

REPORT INFORMATION
  Report Type: 
  Country: None (occurrence: None)
  Receive Date: 20090624
  Receipt Date: 20090610
  Transmission Date: 20091009
  Serious: Yes (Other)
  Sender: FDA-Public Use
  Company Number: 8047909

PATIENT
  Age: 67 Year
  Sex: Female
  Weight: 78.5 kg

DRUGS (9)
  1. CERTOLIZUMAB PEGOL [Suspect]
     Indication: RHEUMATOID ARTHRITIS
     Dosage: 200 MG 1/2W SC
     Route: 058
     Dates: start: 20051220, end: 20060606
  2. CERTOLIZUMAB PEGOL [Suspect]
     Indication: RHEUMATOID ARTHRITIS
     Dosage: 400 MG 1/2W SC
     Route: 058
     Dates: start: 20060606, end: 20070904
  3. CERTOLIZUMAB PEGOL [Suspect]
     Indication: RHEUMATOID ARTHRITIS
     Dosage: 200 MG 1/2W SC
     Route: 058
     Dates: start: 20071218, end: 20090617
  4. METHOTREXATE [Concomitant]
  5. CELECOXIB [Concomitant]
  6. METHYLPREDNISOLONE [Concomitant]
  7. CALCIGRAN /00434901/ [Concomitant]
  8. NOLIPREL /01421201/ [Concomitant]
  9. METOPROLOL [Concomitant]

REACTIONS (6)
  - BRONCHITIS [None]
  - HYPERTENSION [None]
  - OSTEOPOROSIS [None]
  - PULMONARY TUBERCULOSIS [None]
  - PYELONEPHRITIS ACUTE [None]
  - PYELONEPHRITIS CHRONIC [None]
